FAERS Safety Report 7669667-9 (Version None)
Quarter: 2011Q3

REPORT INFORMATION
  Report Type: 
  Country: None (occurrence: None)
  Receive Date: 20110808
  Receipt Date: 20110803
  Transmission Date: 20111222
  Serious: Yes (Death)
  Sender: FDA-Public Use
  Company Number: US-US-EMD SERONO, INC.-7061969

PATIENT
  Sex: Female
  Weight: 49 kg

DRUGS (1)
  1. REBIF [Suspect]
     Indication: MULTIPLE SCLEROSIS
     Route: 058
     Dates: start: 20100818

REACTIONS (3)
  - DEATH [None]
  - WEIGHT DECREASED [None]
  - DECREASED APPETITE [None]
